FAERS Safety Report 9147582 (Version 2)
Quarter: 2013Q2

REPORT INFORMATION
  Report Type: Report from Study
  Country: JP (occurrence: JP)
  Receive Date: 20130307
  Receipt Date: 20130418
  Transmission Date: 20140414
  Serious: Yes (Death)
  Sender: FDA-Public Use
  Company Number: JP-JNJFOC-20130213449

PATIENT
  Age: 73 Year
  Sex: Male

DRUGS (4)
  1. STELARA [Suspect]
     Indication: PSORIATIC ARTHROPATHY
     Route: 058
     Dates: start: 20120925
  2. STELARA [Suspect]
     Indication: PSORIATIC ARTHROPATHY
     Route: 058
     Dates: start: 20121023, end: 20121023
  3. HUMAN INSULIN [Concomitant]
  4. ISCOTIN [Concomitant]
     Indication: PROPHYLAXIS
     Dates: start: 20120925

REACTIONS (5)
  - Atelectasis [Fatal]
  - Blood pressure decreased [Fatal]
  - Blood glucose decreased [Fatal]
  - Intestinal ischaemia [Fatal]
  - Pneumonia aspiration [Fatal]
